FAERS Safety Report 12595370 (Version 1)
Quarter: 2016Q3

REPORT INFORMATION
  Report Type: Spontaneous
  Country: US (occurrence: US)
  Receive Date: 20160726
  Receipt Date: 20160726
  Transmission Date: 20161109
  Serious: Yes (Hospitalization)
  Sender: FDA-Public Use
  Company Number: US-ENDO PHARMACEUTICALS INC.-2016-002978

PATIENT
  Age: 62 Year
  Sex: Female
  Weight: 76.27 kg

DRUGS (4)
  1. TESSALON [Suspect]
     Active Substance: BENZONATATE
     Indication: INFLUENZA
     Route: 048
     Dates: start: 20151202, end: 20151202
  2. TESSALON [Suspect]
     Active Substance: BENZONATATE
     Indication: RESPIRATORY TRACT INFECTION
  3. LISINOPRIL TABLETS 10MG [Suspect]
     Active Substance: LISINOPRIL
     Indication: HYPERTENSION
     Route: 048
     Dates: start: 2007, end: 20151202
  4. RAPAMUNE [Concomitant]
     Active Substance: SIROLIMUS
     Indication: RENAL TRANSPLANT
     Route: 048
     Dates: start: 1999

REACTIONS (2)
  - Anaphylactic shock [Recovered/Resolved]
  - Angioedema [Recovered/Resolved]

NARRATIVE: CASE EVENT DATE: 20151203
